FAERS Safety Report 19585766 (Version 2)
Quarter: 2021Q3

REPORT INFORMATION
  Report Type: Spontaneous
  Country: AR (occurrence: AR)
  Receive Date: 20210720
  Receipt Date: 20210729
  Transmission Date: 20211014
  Serious: Yes (Other)
  Sender: FDA-Public Use
  Company Number: AR-PFIZER INC-2021887444

PATIENT
  Age: 87 Year
  Sex: Female

DRUGS (2)
  1. JANVAX [Suspect]
     Active Substance: TOFACITINIB
  2. XELJANZ [Suspect]
     Active Substance: TOFACITINIB CITRATE
     Indication: RHEUMATOID ARTHRITIS
     Dosage: 5 MG, 2X/DAY
     Dates: start: 20180420

REACTIONS (2)
  - Product dispensing error [Unknown]
  - Gait inability [Unknown]
